FAERS Safety Report 5322778-5 (Version None)
Quarter: 2007Q2

REPORT INFORMATION
  Report Type: 
  Country: None (occurrence: None)
  Receive Date: 20070511
  Receipt Date: 20070502
  Transmission Date: 20071010
  Serious: Yes (Other)
  Sender: FDA-Public Use
  Company Number: DE-PFIZER INC-2007019091

PATIENT
  Sex: Female
  Weight: 68 kg

DRUGS (4)
  1. CABASERIL [Suspect]
     Indication: PARKINSONISM
     Route: 048
  2. SIFROL [Concomitant]
  3. STALEVO 100 [Concomitant]
  4. ALL OTHER THERAPEUTIC PRODUCTS [Concomitant]

REACTIONS (5)
  - BACK DISORDER [None]
  - DIZZINESS [None]
  - NAUSEA [None]
  - PARKINSONIAN GAIT [None]
  - TREMOR [None]
